FAERS Safety Report 8041934 (Version 5)
Quarter: 2013Q4

REPORT INFORMATION
  Report Type: Spontaneous
  Country: US (occurrence: US)
  Receive Date: 20110718
  Receipt Date: 20131230
  Transmission Date: 20140711
  Serious: Yes (Hospitalization, Other)
  Sender: FDA-Public Use
  Company Number: US-BAYER-2011-061789

PATIENT
  Age: 32 Year
  Sex: Female
  Weight: 68.03 kg

DRUGS (4)
  1. YASMIN [Suspect]
     Dosage: UNK
     Dates: start: 20070524
  2. YAZ [Suspect]
     Dosage: UNK
     Dates: start: 20070524
  3. OCELLA [Suspect]
     Dosage: UNK
     Dates: start: 20070524
  4. NITROFUR-C [Concomitant]
     Indication: URINARY TRACT INFECTION

REACTIONS (17)
  - Cholecystitis chronic [None]
  - Deep vein thrombosis [None]
  - Cholelithiasis [None]
  - Biliary colic [None]
  - Back pain [None]
  - Dyspepsia [None]
  - Abdominal distension [None]
  - Flatulence [None]
  - Constipation [None]
  - Diarrhoea [None]
  - Scar [None]
  - Pain [None]
  - Depression [None]
  - Anxiety [None]
  - Anhedonia [None]
  - General physical health deterioration [None]
  - Asthenia [None]
